FAERS Safety Report 7723597-2 (Version None)
Quarter: 2011Q3

REPORT INFORMATION
  Report Type: 
  Country: None (occurrence: None)
  Receive Date: 20110901
  Receipt Date: 20110823
  Transmission Date: 20111222
  Serious: Yes (Other)
  Sender: FDA-Public Use
  Company Number: US-ASTRAZENECA-2011SE48640

PATIENT
  Age: 83 Year
  Sex: Female

DRUGS (3)
  1. NEXIUM [Suspect]
     Route: 048
  2. PRILOSEC [Suspect]
     Route: 048
  3. CALCIUM CARBONATE [Concomitant]

REACTIONS (3)
  - HIATUS HERNIA [None]
  - GASTROINTESTINAL ULCER [None]
  - DRUG INEFFECTIVE [None]
